FAERS Safety Report 12746454 (Version 1)
Quarter: 2016Q3

REPORT INFORMATION
  Report Type: Spontaneous
  Country: BR (occurrence: BR)
  Receive Date: 20160915
  Receipt Date: 20160915
  Transmission Date: 20161109
  Serious: Yes (Other)
  Sender: FDA-Public Use
  Company Number: BR-AMGEN-BRASP2016124219

PATIENT
  Age: 39 Year
  Sex: Female

DRUGS (1)
  1. ENBREL [Suspect]
     Active Substance: ETANERCEPT
     Indication: PRODUCT USED FOR UNKNOWN INDICATION
     Dosage: UNK
     Route: 065
     Dates: start: 20160222

REACTIONS (9)
  - Sleep disorder due to a general medical condition [Unknown]
  - Wound complication [Unknown]
  - Haemorrhage [Unknown]
  - Incorrect product storage [Unknown]
  - Wound [Unknown]
  - Drug administration error [Unknown]
  - Swelling [Unknown]
  - Pruritus [Unknown]
  - Obesity [Unknown]

NARRATIVE: CASE EVENT DATE: 2016
